FAERS Safety Report 7718893-9 (Version None)
Quarter: 2011Q3

REPORT INFORMATION
  Report Type: 
  Country: None (occurrence: None)
  Receive Date: 20110830
  Receipt Date: 20110817
  Transmission Date: 20111222
  Serious: No
  Sender: FDA-Public Use
  Company Number: US-B.I. PHARMACEUTICALS,INC./RIDGEFIELD-2011-BP-20230BP

PATIENT
  Sex: Male

DRUGS (11)
  1. NIFEDIPINE [Concomitant]
     Indication: HYPERTENSION
     Dosage: 90 MG
  2. LOPRESSOR [Concomitant]
     Indication: HYPERTENSION
     Dosage: 50 MG
  3. LISINOPRIL [Concomitant]
     Indication: HYPERTENSION
     Dosage: 80 MG
  4. AVAPRO [Concomitant]
     Indication: HYPERTENSION
     Dosage: 300 MG
  5. SPIRONOLACTONE [Concomitant]
     Indication: HYPERTENSION
     Dosage: 25 MG
  6. LASIX [Concomitant]
     Indication: HYPERTENSION
     Dosage: 40 MG
  7. CLONIDINE [Concomitant]
     Indication: HYPERTENSION
     Dosage: 0.6 MG
  8. DIGOXIN [Concomitant]
     Indication: ATRIAL FIBRILLATION
     Dosage: 0.125 MG
  9. DOXAZOSIN MESYLATE [Concomitant]
     Dosage: 8 MG
  10. LEVOTHYROXINE SODIUM [Concomitant]
     Indication: HYPOTHYROIDISM
     Dosage: 50 MG
  11. PRADAXA [Suspect]
     Indication: ATRIAL FIBRILLATION
     Dosage: 300 MG
     Route: 048
     Dates: start: 20110812, end: 20110814

REACTIONS (2)
  - DYSPEPSIA [None]
  - FLATULENCE [None]
